FAERS Safety Report 4554737-4 (Version None)
Quarter: 2005Q1

REPORT INFORMATION
  Report Type: 
  Country: None (occurrence: None)
  Receive Date: 20050118
  Receipt Date: 20040402
  Transmission Date: 20050727
  Serious: Yes (Other)
  Sender: FDA-Public Use
  Company Number: US-GLAXOSMITHKLINE-A0506344A

PATIENT
  Age: 56 Year
  Sex: Male

DRUGS (2)
  1. PAXIL [Suspect]
     Indication: DEPRESSION
     Route: 048
     Dates: start: 20010816, end: 20020212
  2. DEPAKOTE [Concomitant]
     Indication: CONVULSION

REACTIONS (2)
  - AGGRESSION [None]
  - DRUG WITHDRAWAL SYNDROME [None]
